FAERS Safety Report 21025172 (Version 18)
Quarter: 2023Q2

REPORT INFORMATION
  Report Type: Report from Study
  Country: US (occurrence: None)
  Receive Date: 20220630
  Receipt Date: 20230621
  Transmission Date: 20230721
  Serious: Yes (Hospitalization)
  Sender: FDA-Public Use
  Company Number: US-ROCHE-3124060

PATIENT
  Age: 72 Year
  Sex: Male
  Weight: 125.6 kg

DRUGS (105)
  1. COBIMETINIB [Suspect]
     Active Substance: COBIMETINIB
     Indication: Malignant melanoma
     Dosage: START DATE OF MOST RECENT DOSE (20 MG) OF STUDY DRUG PRIOR TO SAE 18/JUN/2022
     Route: 048
     Dates: start: 20220607
  2. INSULIN ASPART [Concomitant]
     Active Substance: INSULIN ASPART
     Route: 058
  3. ACETAMINOPHEN [Concomitant]
     Active Substance: ACETAMINOPHEN
     Indication: Pain
     Route: 048
     Dates: start: 2020, end: 20220725
  4. ACETAMINOPHEN [Concomitant]
     Active Substance: ACETAMINOPHEN
     Indication: Pyrexia
     Dosage: DO NOT EXCEED 4000MG/ DAY
     Route: 048
  5. ACETAMINOPHEN [Concomitant]
     Active Substance: ACETAMINOPHEN
     Route: 048
     Dates: start: 20220620, end: 20220620
  6. VITAMIN C [Concomitant]
     Active Substance: ASCORBIC ACID
     Route: 048
     Dates: start: 2020
  7. ASPIRIN [Concomitant]
     Active Substance: ASPIRIN
     Indication: Deep vein thrombosis
     Route: 048
     Dates: start: 2012, end: 20220725
  8. ASPIRIN [Concomitant]
     Active Substance: ASPIRIN
     Dosage: DO NOT CHEW TABLET
     Route: 048
     Dates: start: 20220712, end: 20220714
  9. ASPIRIN [Concomitant]
     Active Substance: ASPIRIN
     Dosage: DO NOT CHEW TABLET
     Route: 048
     Dates: start: 2012, end: 20220816
  10. COLACE [Concomitant]
     Active Substance: DOCUSATE SODIUM
     Indication: Constipation
     Route: 048
     Dates: start: 2020
  11. LEVOTHYROXINE [Concomitant]
     Active Substance: LEVOTHYROXINE
     Indication: Hypothyroidism
     Dosage: DOSE 200 OTHER
     Route: 048
     Dates: start: 2021
  12. LEVOTHYROXINE [Concomitant]
     Active Substance: LEVOTHYROXINE
     Route: 048
     Dates: start: 2012
  13. LEVOTHYROXINE [Concomitant]
     Active Substance: LEVOTHYROXINE
     Route: 048
  14. LEVOTHYROXINE [Concomitant]
     Active Substance: LEVOTHYROXINE
     Route: 048
     Dates: start: 2020
  15. LEVOTHYROXINE [Concomitant]
     Active Substance: LEVOTHYROXINE
     Dosage: 25 OTHER
     Route: 048
     Dates: start: 2020
  16. LEVOTHYROXINE [Concomitant]
     Active Substance: LEVOTHYROXINE
     Route: 048
     Dates: start: 20220710, end: 20220711
  17. LEVOTHYROXINE [Concomitant]
     Active Substance: LEVOTHYROXINE
     Route: 048
     Dates: start: 20220712, end: 20220714
  18. LORATADINE [Concomitant]
     Active Substance: LORATADINE
     Indication: Seasonal allergy
     Route: 048
     Dates: start: 2020
  19. MELATONIN [Concomitant]
     Active Substance: MELATONIN
     Indication: Insomnia
     Route: 048
     Dates: start: 2020
  20. MELATONIN [Concomitant]
     Active Substance: MELATONIN
     Dates: start: 20220727, end: 20220728
  21. MELATONIN [Concomitant]
     Active Substance: MELATONIN
     Route: 048
     Dates: start: 20220728, end: 20220730
  22. MELATONIN [Concomitant]
     Active Substance: MELATONIN
     Route: 048
     Dates: start: 20220711, end: 20220713
  23. OMEPRAZOLE [Concomitant]
     Active Substance: OMEPRAZOLE
     Indication: Gastrooesophageal reflux disease
     Route: 048
     Dates: start: 2020, end: 20220525
  24. OXYCODONE [Concomitant]
     Active Substance: OXYCODONE
     Indication: Pain
     Route: 048
     Dates: start: 2020, end: 20220809
  25. MIRALAX [Concomitant]
     Active Substance: POLYETHYLENE GLYCOL 3350
     Indication: Constipation
     Route: 048
     Dates: start: 2020, end: 20220830
  26. ONDANSETRON [Concomitant]
     Active Substance: ONDANSETRON
     Indication: Nausea
     Route: 048
     Dates: start: 20220603
  27. ONDANSETRON [Concomitant]
     Active Substance: ONDANSETRON
     Indication: Vomiting
     Route: 048
     Dates: start: 20220614
  28. ONDANSETRON [Concomitant]
     Active Substance: ONDANSETRON
     Route: 048
     Dates: start: 20220603
  29. ONDANSETRON [Concomitant]
     Active Substance: ONDANSETRON
     Route: 042
     Dates: start: 20220702, end: 20220702
  30. ONDANSETRON [Concomitant]
     Active Substance: ONDANSETRON
     Route: 042
     Dates: start: 20220617, end: 20220617
  31. LORAZEPAM [Concomitant]
     Active Substance: LORAZEPAM
     Indication: Nausea
     Route: 048
     Dates: start: 20220617, end: 20220620
  32. LORAZEPAM [Concomitant]
     Active Substance: LORAZEPAM
     Indication: Anxiety
     Route: 048
     Dates: start: 20220601
  33. LORAZEPAM [Concomitant]
     Active Substance: LORAZEPAM
     Route: 048
     Dates: start: 20220725
  34. BENADRYL [Concomitant]
     Active Substance: DIPHENHYDRAMINE HYDROCHLORIDE
     Indication: Pruritus
     Route: 048
     Dates: start: 20220622
  35. ERGOCALCIFEROL [Concomitant]
     Active Substance: ERGOCALCIFEROL
     Route: 048
     Dates: start: 2020
  36. CARBOXYMETHYLCELLULOSE [Concomitant]
     Active Substance: CARBOXYMETHYLCELLULOSE
     Indication: Dry eye
     Route: 047
     Dates: start: 20210517
  37. CARBOXYMETHYLCELLULOSE [Concomitant]
     Active Substance: CARBOXYMETHYLCELLULOSE
     Dosage: 1 UNKNOWN
     Route: 047
     Dates: start: 20220725
  38. CLOBETASOL [Concomitant]
     Active Substance: CLOBETASOL
     Indication: Rash
  39. DEXTROSE [Concomitant]
     Active Substance: DEXTROSE\DEXTROSE MONOHYDRATE
     Route: 048
  40. DEXTROSE [Concomitant]
     Active Substance: DEXTROSE\DEXTROSE MONOHYDRATE
     Route: 048
     Dates: start: 20220725
  41. KETOCONAZOLE [Concomitant]
     Active Substance: KETOCONAZOLE
     Indication: Rash maculo-papular
  42. KETOCONAZOLE [Concomitant]
     Active Substance: KETOCONAZOLE
     Route: 061
     Dates: start: 20220622, end: 20220719
  43. MONTELUKAST [Concomitant]
     Active Substance: MONTELUKAST SODIUM
  44. MUPIROCIN [Concomitant]
     Active Substance: MUPIROCIN
     Indication: Infection
  45. POLYETHYLENE GLYCOL [Concomitant]
     Active Substance: POLYETHYLENE GLYCOL
     Indication: Constipation
     Dosage: 1 CAPSULE
     Route: 048
     Dates: start: 2020, end: 20220830
  46. SIMVASTATIN [Concomitant]
     Active Substance: SIMVASTATIN
     Indication: Hyperlipidaemia
     Dosage: TAKE ONE-HALE TABLET BY MOUTH
     Route: 048
  47. SIMVASTATIN [Concomitant]
     Active Substance: SIMVASTATIN
     Route: 048
     Dates: start: 2012
  48. FLOMAX [Concomitant]
     Active Substance: TAMSULOSIN HYDROCHLORIDE
     Indication: Micturition urgency
     Dosage: 1 CAPSULE
     Route: 048
     Dates: start: 2020
  49. FLOMAX [Concomitant]
     Active Substance: TAMSULOSIN HYDROCHLORIDE
     Indication: Benign prostatic hyperplasia
  50. XYLITOL [Concomitant]
     Active Substance: XYLITOL
     Dosage: ORAL DISC DISSOLVE 1 DISC IN CHEEK AND GUM ACTIVE UNTIL DISSOLVED EVERY HOUR AS NEEDED DO NOT CHEW.
     Route: 048
     Dates: start: 20220725
  51. DOCUSATE [Concomitant]
     Active Substance: DOCUSATE
     Indication: Constipation
     Route: 048
     Dates: start: 20220711, end: 20220713
  52. DOCUSATE [Concomitant]
     Active Substance: DOCUSATE
     Route: 048
     Dates: start: 2020
  53. GABAPENTIN [Concomitant]
     Active Substance: GABAPENTIN
     Route: 048
     Dates: start: 20210210
  54. GABAPENTIN [Concomitant]
     Active Substance: GABAPENTIN
     Route: 048
     Dates: start: 20220725
  55. GABAPENTIN [Concomitant]
     Active Substance: GABAPENTIN
     Route: 048
     Dates: start: 20220711, end: 20220713
  56. TYLENOL [Concomitant]
     Active Substance: ACETAMINOPHEN
     Indication: Pyrexia
     Route: 048
     Dates: start: 20220617
  57. TYLENOL [Concomitant]
     Active Substance: ACETAMINOPHEN
     Indication: Pain
  58. FINASTERIDE [Concomitant]
     Active Substance: FINASTERIDE
     Indication: Benign prostatic hyperplasia
     Route: 048
     Dates: start: 20220805
  59. FINASTERIDE [Concomitant]
     Active Substance: FINASTERIDE
     Route: 048
     Dates: start: 20220713
  60. ZOLPIDEM [Concomitant]
     Active Substance: ZOLPIDEM TARTRATE
     Indication: Insomnia
     Route: 048
     Dates: start: 20220701
  61. ARTIFICIAL SALIVA [Concomitant]
     Indication: Dry mouth
     Route: 048
     Dates: start: 20220809
  62. ARTIFICIAL SALIVA [Concomitant]
     Route: 048
     Dates: start: 20220809
  63. HYDROCODONE [Concomitant]
     Active Substance: HYDROCODONE
     Indication: Tumour pain
     Route: 048
     Dates: start: 20220725
  64. ASCORBIC ACID [Concomitant]
     Active Substance: ASCORBIC ACID
     Route: 048
     Dates: start: 20220725
  65. ASCORBIC ACID [Concomitant]
     Active Substance: ASCORBIC ACID
     Route: 048
     Dates: start: 2020
  66. CHOLECALCIFEROL [Concomitant]
     Active Substance: CHOLECALCIFEROL
     Dosage: 5 TABLET
     Route: 048
     Dates: start: 20220725
  67. CHOLECALCIFEROL [Concomitant]
     Active Substance: CHOLECALCIFEROL
     Dosage: 1000 U
     Route: 048
     Dates: start: 20200109
  68. PEPTO-BISMOL ULTRA [Concomitant]
     Active Substance: BISMUTH SUBSALICYLATE
     Indication: Diarrhoea
     Route: 048
     Dates: start: 20220612, end: 20220725
  69. SODIUM CHLORIDE [Concomitant]
     Active Substance: SODIUM CHLORIDE
     Indication: Hypotension
     Route: 042
     Dates: start: 20220726, end: 20220726
  70. SODIUM CHLORIDE [Concomitant]
     Active Substance: SODIUM CHLORIDE
     Indication: Vomiting
     Route: 042
     Dates: start: 20220726, end: 20220730
  71. SODIUM CHLORIDE [Concomitant]
     Active Substance: SODIUM CHLORIDE
     Route: 042
     Dates: start: 20220527, end: 20220527
  72. SODIUM CHLORIDE [Concomitant]
     Active Substance: SODIUM CHLORIDE
     Dosage: 75 ML/H
     Route: 042
     Dates: start: 20220705, end: 20220709
  73. SODIUM CHLORIDE [Concomitant]
     Active Substance: SODIUM CHLORIDE
     Route: 042
     Dates: start: 20220702, end: 20220702
  74. SODIUM CHLORIDE [Concomitant]
     Active Substance: SODIUM CHLORIDE
     Route: 042
     Dates: start: 20220622, end: 20220622
  75. SODIUM CHLORIDE [Concomitant]
     Active Substance: SODIUM CHLORIDE
     Dosage: 150 ML/H
     Route: 042
     Dates: start: 20220622, end: 20220622
  76. SODIUM CHLORIDE [Concomitant]
     Active Substance: SODIUM CHLORIDE
     Route: 042
     Dates: start: 20220617, end: 20220617
  77. SODIUM CHLORIDE [Concomitant]
     Active Substance: SODIUM CHLORIDE
     Route: 042
     Dates: start: 20220620, end: 20220620
  78. SODIUM CHLORIDE [Concomitant]
     Active Substance: SODIUM CHLORIDE
     Dosage: 150 ML/H
     Route: 042
     Dates: start: 20220622, end: 20220622
  79. ATARAX [Concomitant]
     Active Substance: HYDROXYZINE HYDROCHLORIDE
     Indication: Anxiety
  80. DEXTROSE [Concomitant]
     Active Substance: DEXTROSE\DEXTROSE MONOHYDRATE
     Indication: Type 2 diabetes mellitus
     Dosage: 999 ML/H
     Route: 042
     Dates: start: 20220620, end: 20220620
  81. GLUCAGEN [Concomitant]
     Active Substance: GLUCAGON HYDROCHLORIDE
  82. ATIVAN [Concomitant]
     Active Substance: LORAZEPAM
     Indication: Anxiety
  83. MORPHINE [Concomitant]
     Active Substance: MORPHINE
     Indication: Pain
     Route: 042
     Dates: start: 20220727, end: 20220727
  84. ZOFRAN [Concomitant]
     Active Substance: ONDANSETRON HYDROCHLORIDE
     Indication: Nausea
     Route: 042
     Dates: start: 20220728, end: 20220728
  85. ZOFRAN [Concomitant]
     Active Substance: ONDANSETRON HYDROCHLORIDE
     Indication: Vomiting
  86. PROTONIX [Concomitant]
     Active Substance: PANTOPRAZOLE SODIUM
     Route: 042
     Dates: start: 20220726, end: 20220730
  87. AMBIEN [Concomitant]
     Active Substance: ZOLPIDEM TARTRATE
     Route: 048
     Dates: start: 20220729, end: 20220729
  88. LOPERAMIDE [Concomitant]
     Active Substance: LOPERAMIDE
     Indication: Diarrhoea
     Route: 048
     Dates: start: 20220524, end: 20220725
  89. OPIUM TINCTURE [Concomitant]
     Active Substance: MORPHINE
     Indication: Diarrhoea
     Route: 048
     Dates: start: 20220526
  90. PREDNISONE [Concomitant]
     Active Substance: PREDNISONE
     Indication: Diarrhoea
     Route: 048
     Dates: start: 202205, end: 20220523
  91. LANTUS [Concomitant]
     Active Substance: INSULIN GLARGINE
     Indication: Type 2 diabetes mellitus
     Dosage: 12 U
     Route: 058
     Dates: start: 20220711, end: 20220712
  92. LANTUS [Concomitant]
     Active Substance: INSULIN GLARGINE
     Dosage: 15 U
     Route: 058
     Dates: start: 20220713, end: 20220713
  93. LANTUS [Concomitant]
     Active Substance: INSULIN GLARGINE
     Dosage: 20 U
     Route: 058
     Dates: start: 20220703, end: 20220704
  94. LANTUS [Concomitant]
     Active Substance: INSULIN GLARGINE
     Dosage: 22 U
     Route: 058
     Dates: start: 20220705, end: 20220705
  95. LANTUS [Concomitant]
     Active Substance: INSULIN GLARGINE
     Dosage: 30 U
     Route: 058
     Dates: start: 20220706, end: 20220706
  96. LANTUS [Concomitant]
     Active Substance: INSULIN GLARGINE
     Dosage: 32 U
     Route: 058
     Dates: start: 20220712, end: 20220712
  97. LANTUS [Concomitant]
     Active Substance: INSULIN GLARGINE
     Dosage: 35 U
     Route: 058
     Dates: start: 20220707, end: 20220708
  98. METHYLPREDNISOLONE [Concomitant]
     Active Substance: METHYLPREDNISOLONE
     Indication: Pyrexia
     Route: 042
     Dates: start: 20220620, end: 20220620
  99. LORAZEPAM [Concomitant]
     Active Substance: LORAZEPAM
     Indication: Vomiting
     Route: 048
     Dates: start: 20220617, end: 20220620
  100. PROMETHAZINE [Concomitant]
     Active Substance: PROMETHAZINE HYDROCHLORIDE
     Indication: Vomiting
     Route: 042
     Dates: start: 20220620, end: 20220620
  101. DIPHENHYDRAMINE [Concomitant]
     Active Substance: DIPHENHYDRAMINE
     Indication: Rash maculo-papular
     Route: 048
     Dates: start: 20220622, end: 20220719
  102. CETIRIZINE [Concomitant]
     Active Substance: CETIRIZINE HYDROCHLORIDE
     Indication: Rash maculo-papular
     Route: 048
     Dates: start: 20220622, end: 20220719
  103. TRIAMCINOLONE [Concomitant]
     Active Substance: TRIAMCINOLONE
     Indication: Rash maculo-papular
     Dosage: ND OTHER
     Route: 061
     Dates: start: 20220622, end: 20220719
  104. CALCIUM GLUCONATE [Concomitant]
     Active Substance: CALCIUM GLUCONATE
     Indication: Hypocalcaemia
     Route: 042
     Dates: start: 20220622, end: 20220622
  105. CARBOXYMETHYLCELLULOSE [Concomitant]
     Active Substance: CARBOXYMETHYLCELLULOSE
     Indication: Dry eye
     Route: 047
     Dates: start: 20210517

REACTIONS (4)
  - Asthenia [Recovered/Resolved]
  - Hypotension [Recovered/Resolved]
  - Cellulitis [Recovered/Resolved]
  - Blood creatine phosphokinase increased [Recovered/Resolved]

NARRATIVE: CASE EVENT DATE: 20220620
